FAERS Safety Report 12416641 (Version 1)
Quarter: 2016Q2

REPORT INFORMATION
  Report Type: Spontaneous
  Country: US (occurrence: US)
  Receive Date: 20160530
  Receipt Date: 20160530
  Transmission Date: 20160815
  Serious: Yes (Other)
  Sender: FDA-Public Use
  Company Number: US-JNJFOC-20130607637

PATIENT

DRUGS (4)
  1. DOCETAXEL. [Suspect]
     Active Substance: DOCETAXEL
     Indication: OVARIAN CANCER
     Dosage: 1 HOUR INFUSION IN 250ML OF 0.9% SODIUM CHLORIDE OR 55 DEXTROSE SOLUTION
     Route: 042
  2. DEXAMETHASONE. [Concomitant]
     Active Substance: DEXAMETHASONE
     Indication: PREMEDICATION
     Dosage: 30 MINS PRIOR TO TRABECTEDIN
     Route: 042
  3. YONDELIS [Suspect]
     Active Substance: TRABECTEDIN
     Indication: OVARIAN CANCER
     Dosage: OVER 3 HOURS, DILITED IN NORMAL SALINE TO A VOLUME OF AT LEAST 500ML
     Route: 042
  4. CORTICOSTEROIDS [Concomitant]
     Active Substance: CORTICOSTEROID NOS
     Indication: PREMEDICATION
     Dosage: FOR 3 DAYS, STARTING 1 DAY PRIOR TO DOCETAXEL ADMINISTRATION
     Route: 048

REACTIONS (24)
  - Neutropenia [Unknown]
  - Auditory disorder [Unknown]
  - Skin disorder [Unknown]
  - Lung disorder [Unknown]
  - Leukopenia [Unknown]
  - Anaemia [Unknown]
  - Haemorrhage [Unknown]
  - Eye disorder [Unknown]
  - Infertility [Unknown]
  - Metabolic disorder [Unknown]
  - Cardiac disorder [Unknown]
  - Endocrine disorder [Unknown]
  - Urogenital disorder [Unknown]
  - Infection [Unknown]
  - General physical health deterioration [Unknown]
  - Vomiting [Unknown]
  - Blood disorder [Unknown]
  - Nausea [Unknown]
  - Gastrointestinal disorder [Unknown]
  - Pain [Unknown]
  - Nervous system disorder [Unknown]
  - Thrombocytopenia [Unknown]
  - Lymphatic disorder [Unknown]
  - Musculoskeletal disorder [Unknown]
